FAERS Safety Report 14181761 (Version 1)
Quarter: 2017Q4

REPORT INFORMATION
  Report Type: Spontaneous
  Country: US (occurrence: US)
  Receive Date: 20171111
  Receipt Date: 20171111
  Transmission Date: 20180321
  Serious: Yes (Other)
  Sender: FDA-Public Use
  Company Number: None

PATIENT
  Age: 52 Year
  Sex: Male
  Weight: 89.1 kg

DRUGS (1)
  1. DONEPEZIL. [Suspect]
     Active Substance: DONEPEZIL
     Indication: MEMORY IMPAIRMENT
     Dosage: QUANTITY:1 TABLET(S); AT BEDTIME?
     Route: 048

REACTIONS (4)
  - Impulse-control disorder [None]
  - Impaired driving ability [None]
  - Anger [None]
  - Aggression [None]

NARRATIVE: CASE EVENT DATE: 20170404
